FAERS Safety Report 4561440-3 (Version None)
Quarter: 2005Q1

REPORT INFORMATION
  Report Type: 
  Country: None (occurrence: None)
  Receive Date: 20050121
  Receipt Date: 20050104
  Transmission Date: 20050727
  Serious: Yes (Other)
  Sender: FDA-Public Use
  Company Number: USA041183526

PATIENT
  Age: 77 Year
  Sex: Female
  Weight: 50 kg

DRUGS (3)
  1. FORTEO [Suspect]
     Indication: OSTEOPOROSIS
  2. EVISTA [Suspect]
     Dosage: 60 MG/1 DAY
  3. CALCIUM GLUCONATE [Concomitant]

REACTIONS (5)
  - BLOOD ALBUMIN DECREASED [None]
  - HEPATIC STEATOSIS [None]
  - HEPATITIS C [None]
  - LABORATORY TEST ABNORMAL [None]
  - PROTEIN TOTAL DECREASED [None]
